FAERS Safety Report 17759098 (Version 1)
Quarter: 2020Q2

REPORT INFORMATION
  Report Type: Spontaneous
  Country: US (occurrence: US)
  Receive Date: 20200508
  Receipt Date: 20200508
  Transmission Date: 20200714
  Serious: No
  Sender: FDA-Public Use
  Company Number: NVSC2020US124653

PATIENT
  Sex: Male

DRUGS (1)
  1. CIPRODEX [Suspect]
     Active Substance: CIPROFLOXACIN HYDROCHLORIDE\DEXAMETHASONE
     Indication: PRODUCT USED FOR UNKNOWN INDICATION
     Dosage: 4 GTT, BID
     Route: 065
     Dates: start: 20200430, end: 20200506

REACTIONS (4)
  - Mastication disorder [Unknown]
  - Ear pain [Unknown]
  - Ear swelling [Unknown]
  - Drug ineffective [Unknown]
